FAERS Safety Report 21423788 (Version 1)
Quarter: 2022Q4

REPORT INFORMATION
  Report Type: Spontaneous
  Country: US (occurrence: None)
  Receive Date: 20221006
  Receipt Date: 20221006
  Transmission Date: 20230112
  Serious: Yes (Hospitalization)
  Sender: FDA-Public Use
  Company Number: None

PATIENT
  Age: 76 Year
  Sex: Male
  Weight: 116.7 kg

DRUGS (15)
  1. ABIRATERONE ACETATE [Suspect]
     Active Substance: ABIRATERONE ACETATE
     Indication: Prostate cancer
     Dosage: FREQUENCY : DAILY;?
     Route: 048
     Dates: start: 20220808
  2. CALCIUM ORAL TABLET [Concomitant]
  3. DULCOLAX ORAL TABLET DELAYED RELEAS [Concomitant]
  4. FISH OIL ORAL CAPSULE [Concomitant]
  5. LISINOPRIL ORAL TABLET [Concomitant]
  6. MELATONIN ORAL CAPSULE [Concomitant]
  7. MORPHINE SULFATE ER ORAL TABLET [Concomitant]
  8. HYDROCHLOROTHIAZIDE ORAL CAPSULE [Concomitant]
  9. MULTIVITAMIN ADULTS 50+ ORAL TABLET [Concomitant]
  10. OXYCONTIN ORAL TABLET ER 12 HOUR AB [Concomitant]
  11. PREDNISONE ORAL TABLET [Concomitant]
  12. SIMVASTATIN [Concomitant]
     Active Substance: SIMVASTATIN
  13. SYNTHROID ORAL TABLET [Concomitant]
  14. TAMSULOSIN HCL ORAL CAPSULE [Concomitant]
  15. TRAZODONE HCL ORAL TABLET [Concomitant]

REACTIONS (3)
  - Lung disorder [None]
  - Heart rate decreased [None]
  - Hypertension [None]

NARRATIVE: CASE EVENT DATE: 20221004
